FAERS Safety Report 8620182-5 (Version None)
Quarter: 2012Q3

REPORT INFORMATION
  Report Type: 
  Country: None (occurrence: None)
  Receive Date: 20120824
  Receipt Date: 20120821
  Transmission Date: 20120928
  Serious: Yes (Death, Hospitalization)
  Sender: FDA-Public Use
  Company Number: PHHY2012IT072552

PATIENT
  Age: 79 Year
  Sex: Female

DRUGS (7)
  1. CIPROFLOXACIN [Concomitant]
  2. ASPIRIN [Concomitant]
  3. FUROSEMIDE [Suspect]
  4. CARVEDILOL [Concomitant]
  5. RAMIPRIL [Suspect]
  6. KETOPROFEN [Suspect]
     Dosage: 50 MG, PER DAY
     Route: 048
  7. OMEPRAZOLE [Concomitant]

REACTIONS (7)
  - PLEURAL EFFUSION [None]
  - RENAL FAILURE ACUTE [None]
  - DECREASED APPETITE [None]
  - METABOLIC ACIDOSIS [None]
  - SWELLING FACE [None]
  - ASTHENIA [None]
  - CARDIAC FAILURE [None]
